FAERS Safety Report 6970481-8 (Version None)
Quarter: 2010Q3

REPORT INFORMATION
  Report Type: 
  Country: None (occurrence: None)
  Receive Date: 20100903
  Receipt Date: 20100824
  Transmission Date: 20110219
  Serious: Yes (Other)
  Sender: FDA-Public Use
  Company Number: TR-001276

PATIENT
  Age: 5 Year
  Sex: Male
  Weight: 15 kg

DRUGS (2)
  1. NAGLAZYME [Suspect]
     Indication: MUCOPOLYSACCHARIDOSIS VI
     Dosage: (1 MG/KG 1X/WEEK INTRAVENOUS DRIP), (0.5 MG/KG 1X/WEEK INTRAVENOUS DRIP)
     Route: 041
  2. DIPHENHYDRAMINE HCL [Concomitant]

REACTIONS (1)
  - THROMBOCYTOPENIA [None]
